FAERS Safety Report 15980108 (Version 1)
Quarter: 2019Q1

REPORT INFORMATION
  Report Type: Spontaneous
  Country: US (occurrence: US)
  Receive Date: 20190219
  Receipt Date: 20190219
  Transmission Date: 20190418
  Serious: Yes (Other)
  Sender: FDA-Public Use
  Company Number: US-009507513-1902USA004692

PATIENT
  Age: 28 Year
  Sex: Female
  Weight: 105.22 kg

DRUGS (1)
  1. NEXPLANON [Suspect]
     Active Substance: ETONOGESTREL
     Dosage: 68 MILLIGRAM, IMPLANT IN UNSPECIFIED ARM
     Route: 059
     Dates: start: 20140401

REACTIONS (5)
  - Device dislocation [Not Recovered/Not Resolved]
  - Infertility female [Unknown]
  - Complication associated with device [Not Recovered/Not Resolved]
  - Implant site pain [Unknown]
  - Incorrect product administration duration [Unknown]

NARRATIVE: CASE EVENT DATE: 2015
